FAERS Safety Report 8544780 (Version 2)
Quarter: 2013Q3

REPORT INFORMATION
  Report Type: Spontaneous
  Country: PT (occurrence: PT)
  Receive Date: 20120503
  Receipt Date: 20130904
  Transmission Date: 20140515
  Serious: Yes (Life-Threatening, Hospitalization)
  Sender: FDA-Public Use
  Company Number: PT-GLAXOSMITHKLINE-B0799252A

PATIENT
  Age: 80 Year
  Sex: Female

DRUGS (11)
  1. ZOREF [Suspect]
     Indication: ABSCESS
     Dosage: 500MG TWICE PER DAY
     Route: 048
     Dates: start: 20120301, end: 20120409
  2. MEROPENEM [Concomitant]
     Indication: ABSCESS
  3. ENOXAPARIN SODIUM [Concomitant]
  4. METRONIDAZOLE [Concomitant]
  5. VANCOMYCIN [Concomitant]
  6. POTASSIUM [Concomitant]
  7. IRON [Concomitant]
  8. MULTIVITAMIN [Concomitant]
  9. ANTI-DEPRESSANT (UNKNOWN) [Concomitant]
  10. PIPERACILLIN + TAZOBACTAM [Concomitant]
     Indication: ABSCESS
  11. RANITIDINE [Concomitant]

REACTIONS (7)
  - Clostridium difficile colitis [Recovered/Resolved]
  - Clostridial infection [Recovering/Resolving]
  - Diarrhoea haemorrhagic [Recovered/Resolved]
  - Fatigue [Recovered/Resolved]
  - Hypoalbuminaemia [Recovering/Resolving]
  - Hypokalaemia [Recovering/Resolving]
  - Anaemia [Recovering/Resolving]
